FAERS Safety Report 9867429 (Version 1)
Quarter: 2014Q1

REPORT INFORMATION
  Report Type: Spontaneous
  Country: US (occurrence: None)
  Receive Date: 20140203
  Receipt Date: 20140203
  Transmission Date: 20141002
  Serious: Yes (Death)
  Sender: FDA-Public Use
  Company Number: None

PATIENT
  Age: 8 Year
  Sex: Female
  Weight: 49 kg

DRUGS (4)
  1. CLONAZEPAM [Suspect]
  2. TOPIRAMATE [Suspect]
  3. GEODON [Suspect]
  4. ACTHAR GEL [Concomitant]

REACTIONS (4)
  - Drug withdrawal convulsions [None]
  - Arrhythmia [None]
  - Arthritis [None]
  - Hyperthermia [None]
